FAERS Safety Report 5236954-3 (Version None)
Quarter: 2007Q1

REPORT INFORMATION
  Report Type: 
  Country: None (occurrence: None)
  Receive Date: 20070213
  Receipt Date: 20070201
  Transmission Date: 20070707
  Serious: Yes (Hospitalization)
  Sender: FDA-Public Use
  Company Number: HQWYE280402FEB07

PATIENT
  Age: 63 Year
  Sex: Male

DRUGS (6)
  1. PANTOPRAZOLE SODIUM [Suspect]
     Dosage: ^DF^
     Route: 048
     Dates: start: 20050713, end: 20050808
  2. GRAVOL TAB [Suspect]
     Dosage: ^DF^
     Dates: start: 20050713, end: 20050831
  3. MORPHINE [Suspect]
     Dosage: ^DF^
     Dates: start: 20050721, end: 20050810
  4. TOMUDEX [Suspect]
     Indication: COLON CANCER
     Route: 042
     Dates: start: 20050726, end: 20050726
  5. CAMPTOSAR [Suspect]
     Indication: COLON CANCER
     Dosage: ^DF^
     Route: 042
     Dates: start: 20050726
  6. CAMPTOSAR [Suspect]
     Dosage: ^DF^
     Route: 042
     Dates: start: 20050403

REACTIONS (2)
  - RASH [None]
  - SKIN EXFOLIATION [None]
